FAERS Safety Report 6075582-7 (Version None)
Quarter: 2009Q1

REPORT INFORMATION
  Report Type: 
  Country: None (occurrence: None)
  Receive Date: 20090210
  Receipt Date: 20090210
  Transmission Date: 20090719
  Serious: Yes (Hospitalization)
  Sender: FDA-Public Use
  Company Number: None

PATIENT
  Sex: Male
  Weight: 93 kg

DRUGS (1)
  1. CISPLATIN [Suspect]
     Dosage: 394 MG
     Dates: end: 20090105

REACTIONS (6)
  - DEHYDRATION [None]
  - NEUTROPENIA [None]
  - PAIN [None]
  - PYREXIA [None]
  - STOMATITIS [None]
  - SUPERINFECTION [None]
